FAERS Safety Report 9766725 (Version 1)
Quarter: 2013Q4

REPORT INFORMATION
  Report Type: Spontaneous
  Country: US (occurrence: US)
  Receive Date: 20131217
  Receipt Date: 20131217
  Transmission Date: 20140711
  Serious: No
  Sender: FDA-Public Use
  Company Number: US-GLAXOSMITHKLINE-A1031416A

PATIENT
  Sex: Female
  Weight: 50 kg

DRUGS (5)
  1. VOTRIENT [Suspect]
     Indication: OSTEOSARCOMA
     Dosage: 800MG PER DAY
     Route: 048
  2. GABAPENTIN [Concomitant]
     Dosage: 100MG UNKNOWN
     Route: 065
  3. ZOCOR [Concomitant]
     Dosage: 10MG UNKNOWN
     Route: 065
  4. HYDROCODONE/ APAP [Concomitant]
  5. PROCHLORPERAZINE TAB [Concomitant]
     Dosage: 10MG UNKNOWN
     Route: 065

REACTIONS (2)
  - Increased appetite [Unknown]
  - Hair colour changes [Unknown]
